FAERS Safety Report 18705655 (Version 1)
Quarter: 2021Q1

REPORT INFORMATION
  Report Type: Spontaneous
  Country: US (occurrence: US)
  Receive Date: 20210105
  Receipt Date: 20210105
  Transmission Date: 20210419
  Serious: Yes (Other)
  Sender: FDA-Public Use
  Company Number: None

PATIENT
  Age: 32 Year
  Sex: Female
  Weight: 102 kg

DRUGS (2)
  1. BAMLANIVIMAB. [Suspect]
     Active Substance: BAMLANIVIMAB
     Indication: COVID-19
     Dosage: ?          OTHER FREQUENCY:ONCE;?
     Route: 040
     Dates: start: 20201229
  2. PREDISONE 40 MG PO DAILY [Concomitant]
     Dates: start: 20201228, end: 20210101

REACTIONS (3)
  - Stomatitis [None]
  - Chest pain [None]
  - Dysphagia [None]

NARRATIVE: CASE EVENT DATE: 20201230
